FAERS Safety Report 8794824 (Version 1)
Quarter: 2012Q4

REPORT INFORMATION
  Report Type: Report from Study
  Country: US (occurrence: US)
  Receive Date: 20120917
  Receipt Date: 20120917
  Transmission Date: 20130627
  Serious: Yes (Hospitalization)
  Sender: FDA-Public Use
  Company Number: US-UCBSA-040700

PATIENT
  Age: 50 Year
  Sex: Female
  Weight: 66.5 kg

DRUGS (9)
  1. LACOSAMIDE [Suspect]
     Indication: EPILEPSY
     Dosage: PREVIOUS DOSE: UNKNOWN DOSE ONCE DAILY FROM 31/MAR/2011 TO 16/JUN/2011
     Route: 048
     Dates: start: 20110616, end: 20110830
  2. LAMICTAL [Concomitant]
     Indication: CONVULSION
     Dates: start: 20110616, end: 20110630
  3. LAMICTAL [Concomitant]
     Indication: CONVULSION
     Dosage: IN MORNING
     Dates: start: 20110630, end: 20110714
  4. LAMICTAL [Concomitant]
     Indication: CONVULSION
     Dosage: IN MORNING
     Dates: start: 20110714
  5. LAMICTAL [Concomitant]
     Indication: CONVULSION
     Dosage: AT NIGHT
     Dates: start: 20110721, end: 20110728
  6. LAMICTAL [Concomitant]
     Indication: CONVULSION
     Dosage: AT NIGHT
     Dates: start: 20110729
  7. ADVIL [Concomitant]
     Indication: HEADACHE
     Dates: start: 201010
  8. ADVIL [Concomitant]
     Indication: BACK PAIN
     Dates: start: 201010
  9. PEPCID [Concomitant]
     Indication: GASTROOESOPHAGEAL REFLUX DISEASE
     Dates: start: 200108

REACTIONS (1)
  - Convulsion [Recovered/Resolved]
